FAERS Safety Report 18065345 (Version 1)
Quarter: 2020Q3

REPORT INFORMATION
  Report Type: Report from Study
  Country: IT (occurrence: IT)
  Receive Date: 20200724
  Receipt Date: 20200724
  Transmission Date: 20201103
  Serious: Yes (Hospitalization)
  Sender: FDA-Public Use
  Company Number: IT-ACCORD-192411

PATIENT
  Age: 53 Year
  Sex: Female
  Weight: 45 kg

DRUGS (1)
  1. METHOTREXATE. [Suspect]
     Active Substance: METHOTREXATE
     Indication: PSORIATIC ARTHROPATHY
     Route: 058
     Dates: start: 20200624, end: 20200704

REACTIONS (7)
  - Thrombocytopenia [Recovering/Resolving]
  - Epistaxis [Recovering/Resolving]
  - Melaena [Recovering/Resolving]
  - Medication error [Unknown]
  - Anaemia [Recovering/Resolving]
  - Leukopenia [Recovering/Resolving]
  - Product prescribing error [Unknown]

NARRATIVE: CASE EVENT DATE: 20200711
